FAERS Safety Report 19670292 (Version 1)
Quarter: 2021Q3

REPORT INFORMATION
  Report Type: Spontaneous
  Country: US (occurrence: US)
  Receive Date: 20210806
  Receipt Date: 20210806
  Transmission Date: 20211014
  Serious: Yes (Other)
  Sender: FDA-Public Use
  Company Number: US-SAOL THERAPEUTICS-2020SAO00503

PATIENT
  Sex: Female
  Weight: 55 kg

DRUGS (1)
  1. LIORESAL [Suspect]
     Active Substance: BACLOFEN
     Indication: MUSCLE SPASTICITY
     Dosage: 1800 ?G, \DAY
     Route: 037

REACTIONS (2)
  - Therapeutic product effect variable [Unknown]
  - Device leakage [Not Recovered/Not Resolved]
